FAERS Safety Report 8143927-X (Version None)
Quarter: 2012Q1

REPORT INFORMATION
  Report Type: 
  Country: None (occurrence: None)
  Receive Date: 20120217
  Receipt Date: 20120209
  Transmission Date: 20120608
  Serious: Yes (Other)
  Sender: FDA-Public Use
  Company Number: JP-UCBSA-051027

PATIENT
  Age: 50 Year
  Sex: Male

DRUGS (1)
  1. KEPPRA [Suspect]
     Dosage: 500 MG
     Route: 048
     Dates: start: 20120126, end: 20120202

REACTIONS (1)
  - WHITE BLOOD CELL COUNT DECREASED [None]
